FAERS Safety Report 5687758-9 (Version None)
Quarter: 2008Q1

REPORT INFORMATION
  Report Type: 
  Country: None (occurrence: None)
  Receive Date: 20080328
  Receipt Date: 20061011
  Transmission Date: 20080703
  Serious: No
  Sender: FDA-Public Use
  Company Number: US-BAYER-US-2006-030655

PATIENT
  Age: 27 Year
  Sex: Female

DRUGS (3)
  1. MIRENA [Suspect]
     Indication: CONTRACEPTION
     Route: 015
     Dates: start: 20060828
  2. IMURAN [Concomitant]
     Dosage: UNIT DOSE: 200 MG
  3. PREDNISONE TAB [Concomitant]
     Dosage: UNIT DOSE: 20 MG

REACTIONS (3)
  - ABDOMINAL PAIN [None]
  - ALOPECIA [None]
  - METRORRHAGIA [None]
